FAERS Safety Report 16593101 (Version 1)
Quarter: 2019Q3

REPORT INFORMATION
  Report Type: Spontaneous
  Country: US (occurrence: US)
  Receive Date: 20190605
  Receipt Date: 20190605
  Transmission Date: 20191004
  Serious: Yes (Death)
  Sender: FDA-Public Use
  Company Number: None

PATIENT
  Age: 60 Year
  Sex: Female

DRUGS (1)
  1. TACROLIMUS CAP [Suspect]
     Active Substance: TACROLIMUS
     Dates: start: 20190522, end: 20190601

REACTIONS (1)
  - Death [None]

NARRATIVE: CASE EVENT DATE: 20190601
